FAERS Safety Report 8284569-5 (Version None)
Quarter: 2012Q2

REPORT INFORMATION
  Report Type: 
  Country: None (occurrence: None)
  Receive Date: 20120413
  Receipt Date: 20111017
  Transmission Date: 20120825
  Serious: No
  Sender: FDA-Public Use
  Company Number: US-ASTRAZENECA-2011SE62703

PATIENT
  Age: 42 Year
  Sex: Female

DRUGS (1)
  1. NEXIUM [Suspect]
     Route: 048

REACTIONS (8)
  - ARTHRITIS [None]
  - FIBROMYALGIA [None]
  - CHEST PAIN [None]
  - ARTHRALGIA [None]
  - DRUG DOSE OMISSION [None]
  - DYSPHAGIA [None]
  - MUSCULOSKELETAL PAIN [None]
  - DYSPEPSIA [None]
